FAERS Safety Report 9060239 (Version 2)
Quarter: 2013Q1

REPORT INFORMATION
  Report Type: Spontaneous
  Country: US (occurrence: US)
  Receive Date: 20130212
  Receipt Date: 20130225
  Transmission Date: 20140127
  Serious: No
  Sender: FDA-Public Use
  Company Number: US-009507513-1302USA003657

PATIENT
  Sex: Female

DRUGS (1)
  1. CLARITIN REDITABS 12HR [Suspect]
     Indication: SNEEZING
     Dosage: UNK, UNKNOWN
     Route: 048

REACTIONS (11)
  - Respiratory distress [Unknown]
  - Chest pain [Unknown]
  - Heart rate decreased [Unknown]
  - Dyspnoea [Unknown]
  - Pain in extremity [Unknown]
  - Back pain [Unknown]
  - Cold sweat [Unknown]
  - Drug hypersensitivity [Unknown]
  - Overdose [Unknown]
  - Wrong technique in drug usage process [Unknown]
  - Inappropriate schedule of drug administration [Unknown]
